FAERS Safety Report 17378792 (Version 1)
Quarter: 2020Q1

REPORT INFORMATION
  Report Type: Spontaneous
  Country: MX (occurrence: MX)
  Receive Date: 20200205
  Receipt Date: 20200205
  Transmission Date: 20200409
  Serious: No
  Sender: FDA-Public Use
  Company Number: None

PATIENT
  Age: 33 Year
  Sex: Male
  Weight: 71 kg

DRUGS (1)
  1. BIOMICS [Suspect]
     Active Substance: CEFIXIME
     Indication: SURGERY
     Dosage: ?          QUANTITY:1 CAPSULE(S);?
     Route: 048
     Dates: start: 20200205, end: 20200205

REACTIONS (2)
  - Dyspnoea [None]
  - Swelling face [None]

NARRATIVE: CASE EVENT DATE: 20200205
